FAERS Safety Report 8347381-4 (Version None)
Quarter: 2012Q2

REPORT INFORMATION
  Report Type: 
  Country: None (occurrence: None)
  Receive Date: 20120509
  Receipt Date: 20120424
  Transmission Date: 20120825
  Serious: No
  Sender: FDA-Public Use
  Company Number: US-BAYER-2012-040830

PATIENT
  Sex: Male

DRUGS (5)
  1. LISINOPRIL [Concomitant]
  2. NORVASC [Concomitant]
  3. LEVITRA [Suspect]
     Indication: SEXUAL DYSFUNCTION
     Dosage: 20 MG, PRN
     Route: 048
     Dates: end: 20120421
  4. DEPAKOTE [Concomitant]
  5. CYMBALTA [Concomitant]

REACTIONS (1)
  - SEXUAL DYSFUNCTION [None]
